FAERS Safety Report 5919512-4 (Version None)
Quarter: 2008Q4

REPORT INFORMATION
  Report Type: 
  Country: None (occurrence: None)
  Receive Date: 20081014
  Receipt Date: 20081014
  Transmission Date: 20090506
  Serious: Yes (Other)
  Sender: FDA-Public Use
  Company Number: None

PATIENT
  Age: 15 Year
  Sex: Female
  Weight: 69.6 kg

DRUGS (1)
  1. INVEGA [Suspect]
     Indication: OPPOSITIONAL DEFIANT DISORDER
     Dosage: 3 MG DAILY PO
     Route: 048
     Dates: start: 20081006, end: 20081013

REACTIONS (2)
  - CONVULSION [None]
  - DISEASE RECURRENCE [None]
